FAERS Safety Report 7973040-3 (Version None)
Quarter: 2011Q4

REPORT INFORMATION
  Report Type: 
  Country: None (occurrence: None)
  Receive Date: 20111213
  Receipt Date: 20111207
  Transmission Date: 20120403
  Serious: Yes (Other)
  Sender: FDA-Public Use
  Company Number: CA-PFIZER INC-2011259679

PATIENT
  Sex: Female

DRUGS (3)
  1. SYNTHROID [Concomitant]
     Indication: HYPOTHYROIDISM
     Dosage: 1 TAB OF 0.1 MG, DAILY
     Route: 048
  2. HYZAAR [Concomitant]
     Indication: HYPERTENSION
     Dosage: TWO TABS OF 50MG/12.5MG DAILY
     Route: 048
  3. XALATAN [Suspect]
     Indication: GLAUCOMA
     Dosage: 1 GTT, IN BOTH EYES ONCE DAILY
     Route: 047

REACTIONS (3)
  - VISUAL IMPAIRMENT [None]
  - CATARACT [None]
  - VISION BLURRED [None]
